FAERS Safety Report 25793610 (Version 1)
Quarter: 2025Q3

REPORT INFORMATION
  Report Type: Spontaneous
  Country: EU (occurrence: EU)
  Receive Date: 20250912
  Receipt Date: 20250912
  Transmission Date: 20251020
  Serious: Yes (Life-Threatening, Hospitalization)
  Sender: BRISTOL-MYERS SQUIBB COMPANY
  Company Number: None

PATIENT
  Age: 76 Year
  Sex: Female
  Weight: 52 kg

DRUGS (2)
  1. KRAZATI [Suspect]
     Active Substance: ADAGRASIB
     Indication: Lung adenocarcinoma
     Dosage: 600 MG MORNING AND EVENING
     Dates: start: 20250304, end: 20250312
  2. XGEVA [Suspect]
     Active Substance: DENOSUMAB
     Indication: Lung adenocarcinoma
     Dates: start: 20250303

REACTIONS (5)
  - Diarrhoea [Recovering/Resolving]
  - Vomiting [Recovering/Resolving]
  - Hypocalcaemia [Recovering/Resolving]
  - Hypomagnesaemia [Recovering/Resolving]
  - Hypochloraemia [Recovering/Resolving]

NARRATIVE: CASE EVENT DATE: 20250312
